FAERS Safety Report 19711700 (Version 23)
Quarter: 2023Q4

REPORT INFORMATION
  Report Type: Report from Study
  Country: DE (occurrence: DE)
  Receive Date: 20210817
  Receipt Date: 20231023
  Transmission Date: 20240109
  Serious: Yes (Hospitalization, Other)
  Sender: FDA-Public Use
  Company Number: DE-002147023-PHHY2019DE098478

PATIENT
  Age: 47 Year
  Sex: Female
  Weight: 61 kg

DRUGS (11)
  1. LETROZOLE [Suspect]
     Active Substance: LETROZOLE
     Indication: Breast cancer metastatic
     Dosage: 2.5 MILLIGRAM, QD (2.5 MG, QD)
     Route: 048
     Dates: start: 20190417, end: 20230416
  2. LETROZOLE [Suspect]
     Active Substance: LETROZOLE
     Indication: Breast cancer
  3. FULVESTRANT [Suspect]
     Active Substance: FULVESTRANT
     Indication: Breast cancer metastatic
     Dosage: 500 MG, Q2W(DAILY DOSE,EVERY 2 WEEKS)
     Route: 030
     Dates: start: 20230417
  4. FULVESTRANT [Suspect]
     Active Substance: FULVESTRANT
     Indication: Breast cancer
  5. KISQALI [Suspect]
     Active Substance: RIBOCICLIB
     Indication: Breast cancer metastatic
     Dosage: UNK UNK, QD
     Route: 048
     Dates: start: 20191001, end: 20191006
  6. KISQALI [Suspect]
     Active Substance: RIBOCICLIB
     Indication: Breast cancer
     Dosage: 600MG, QD(21 DAYS INTAKE/7 DAYS PAUSE)
     Route: 048
     Dates: start: 20190417, end: 20190930
  7. KISQALI [Suspect]
     Active Substance: RIBOCICLIB
     Dosage: 600MG, QD(21 DAYS INTAKE/7 DAYS PAUSE)
     Route: 048
     Dates: start: 20191007, end: 20230904
  8. MORPHINE SULFATE [Suspect]
     Active Substance: MORPHINE SULFATE
     Indication: Bone pain
     Dosage: 1X10,BID(ONCE IN MOR,TWICE IN NOON,ONCE IN EVE)
     Route: 048
     Dates: start: 201903, end: 20190620
  9. MORPHINE SULFATE [Suspect]
     Active Substance: MORPHINE SULFATE
     Dosage: 1X30,BID(ONCE IN MOR,TWICE IN NOON,ONCE IN EVE)
     Route: 048
     Dates: start: 201903, end: 20190620
  10. Novalgin [Concomitant]
     Indication: Product used for unknown indication
     Dosage: UNK, PRN (DROPS)
     Route: 065
     Dates: start: 201901, end: 201910
  11. PANTOPRAZOLE [Concomitant]
     Active Substance: PANTOPRAZOLE
     Indication: Product used for unknown indication
     Dosage: 40 MILLIGRAM, QD
     Route: 065
     Dates: start: 201901

REACTIONS (8)
  - C-reactive protein increased [Recovered/Resolved]
  - Febrile infection [Recovered/Resolved]
  - Pneumonia [Recovered/Resolved]
  - Nausea [Recovered/Resolved]
  - Leukopenia [Recovered/Resolved]
  - Neutropenia [Recovered/Resolved]
  - Arthralgia [Not Recovered/Not Resolved]
  - Depression [Not Recovered/Not Resolved]

NARRATIVE: CASE EVENT DATE: 20190420
